FAERS Safety Report 5064688-7 (Version None)
Quarter: 2006Q3

REPORT INFORMATION
  Report Type: 
  Country: None (occurrence: None)
  Receive Date: 20060728
  Receipt Date: 20060427
  Transmission Date: 20061208
  Serious: Yes (Other)
  Sender: FDA-Public Use
  Company Number: FR-GLAXOSMITHKLINE-B0422633A

PATIENT
  Age: 58 Year
  Sex: Male

DRUGS (8)
  1. AUGMENTIN '125' [Suspect]
     Indication: BRONCHITIS
     Dosage: 2TAB PER DAY
     Route: 048
     Dates: start: 20060201, end: 20060201
  2. TRIATEC [Suspect]
     Indication: HYPERTENSION
     Route: 048
  3. AMARYL [Concomitant]
     Dosage: 1UNIT PER DAY
     Route: 048
     Dates: start: 20051101, end: 20060301
  4. GLUCOPHAGE [Concomitant]
     Dosage: 2UNIT PER DAY
     Route: 048
     Dates: start: 20051101
  5. COZAAR [Concomitant]
     Dosage: 1UNIT PER DAY
     Route: 048
  6. MORPHINE SULFATE [Concomitant]
     Dosage: 2UNIT PER DAY
     Route: 048
  7. AMLODIPINE BESYLATE [Concomitant]
     Dosage: 1UNIT PER DAY
     Route: 048
  8. EFFEXOR [Concomitant]
     Dosage: 1UNIT PER DAY
     Route: 048

REACTIONS (2)
  - ECZEMA [None]
  - PSEUDOLYMPHOMA [None]
